FAERS Safety Report 8530790-8 (Version None)
Quarter: 2012Q2

REPORT INFORMATION
  Report Type: 
  Country: None (occurrence: None)
  Receive Date: 20120411
  Receipt Date: 20120223
  Transmission Date: 20120825
  Serious: No
  Sender: FDA-Public Use
  Company Number: PHEH2012US004481

PATIENT
  Sex: Female

DRUGS (1)
  1. ILARIS [Suspect]
     Dosage: 150 MG, EVERY 8 WEEKS, SUBCUTANEOUS
     Route: 058
     Dates: start: 20091015

REACTIONS (1)
  - INFECTION [None]
